FAERS Safety Report 7025573-4 (Version None)
Quarter: 2010Q4

REPORT INFORMATION
  Report Type: 
  Country: None (occurrence: None)
  Receive Date: 20101003
  Receipt Date: 20100925
  Transmission Date: 20110411
  Serious: Yes (Hospitalization, Other)
  Sender: FDA-Public Use
  Company Number: PHHY2010MX64304

PATIENT
  Sex: Female

DRUGS (1)
  1. ACLASTA [Suspect]
     Indication: OSTEOPOROSIS
     Dosage: 5 MG
     Route: 042
     Dates: start: 20091201

REACTIONS (5)
  - CATARACT OPERATION [None]
  - FALL [None]
  - JOINT DISLOCATION [None]
  - LIMB OPERATION [None]
  - RIB FRACTURE [None]
